FAERS Safety Report 8351518-0 (Version None)
Quarter: 2012Q2

REPORT INFORMATION
  Report Type: 
  Country: None (occurrence: None)
  Receive Date: 20120511
  Receipt Date: 20120505
  Transmission Date: 20120825
  Serious: Yes (Hospitalization, Other)
  Sender: FDA-Public Use
  Company Number: US-ASTRAZENECA-2011SE41412

PATIENT
  Age: 54 Year
  Sex: Female

DRUGS (12)
  1. NEXIUM [Suspect]
     Indication: GASTROOESOPHAGEAL REFLUX DISEASE
     Route: 048
     Dates: start: 20010101, end: 20100101
  2. DEXILANT [Concomitant]
     Indication: GASTROOESOPHAGEAL REFLUX DISEASE
  3. ZOLPIDEM [Concomitant]
     Indication: SLEEP DISORDER
  4. IMODIUM [Concomitant]
  5. ZANTAC [Concomitant]
  6. ACETAZOLAMIDE [Concomitant]
     Indication: MENIERE'S DISEASE
  7. WELCHOL [Concomitant]
     Indication: IRRITABLE BOWEL SYNDROME
  8. LIBRAX [Concomitant]
     Indication: IRRITABLE BOWEL SYNDROME
  9. QUESTRAN [Concomitant]
  10. CALCIUM CARBONATE [Concomitant]
  11. PEPCID [Concomitant]
  12. VALTREX [Concomitant]
     Indication: HERPES VIRUS INFECTION

REACTIONS (10)
  - SKIN CANCER [None]
  - BASAL CELL CARCINOMA [None]
  - OSTEOPENIA [None]
  - PAIN [None]
  - VITAMIN D DEFICIENCY [None]
  - EMOTIONAL DISTRESS [None]
  - GALLBLADDER DISORDER [None]
  - OSTEOPOROSIS [None]
  - CALCIUM DEFICIENCY [None]
  - DEPRESSION [None]
